FAERS Safety Report 10051673 (Version 1)
Quarter: 2014Q1

REPORT INFORMATION
  Report Type: Spontaneous
  Country: IS (occurrence: None)
  Receive Date: 20140331
  Receipt Date: 20140331
  Transmission Date: 20141002
  Serious: Yes (Hospitalization)
  Sender: FDA-Public Use
  Company Number: IMP_07535_2014

PATIENT
  Age: 7 Year
  Sex: Female

DRUGS (3)
  1. VALPROIC ACID [Suspect]
     Indication: EPILEPSY
     Dosage: (DF)
  2. SULTHIAME [Concomitant]
  3. CLONAZEPAM [Concomitant]

REACTIONS (13)
  - Incorrect dose administered [None]
  - Toxicity to various agents [None]
  - Somnolence [None]
  - Unresponsive to stimuli [None]
  - Respiratory acidosis [None]
  - Thrombocytopenia [None]
  - Hypoproteinaemia [None]
  - Hypoalbuminaemia [None]
  - Anticonvulsant drug level above therapeutic [None]
  - General physical health deterioration [None]
  - Oxygen saturation decreased [None]
  - Jugular vein distension [None]
  - Oedema peripheral [None]
